FAERS Safety Report 24143886 (Version 1)
Quarter: 2024Q3

REPORT INFORMATION
  Report Type: Spontaneous
  Country: NL (occurrence: NL)
  Receive Date: 20240727
  Receipt Date: 20240727
  Transmission Date: 20241016
  Serious: Yes (Other)
  Sender: TEVA
  Company Number: None

PATIENT
  Age: 92 Year
  Sex: Female
  Weight: 71 kg

DRUGS (7)
  1. AMLODIPINE [Suspect]
     Active Substance: AMLODIPINE BESYLATE
     Indication: Hypertension
     Dosage: 1 PIECE PER DAY, / BRAND NAME NOT SPECIFIED
     Route: 065
     Dates: start: 20240425
  2. AMLODIPINE [Suspect]
     Active Substance: AMLODIPINE BESYLATE
     Indication: Hypertension
     Dosage: 1 PIECE ONCE A DAY. / BRAND NAME NOT SPECIFIED
     Route: 065
     Dates: end: 20240527
  3. CHOLECALCIFEROL [Concomitant]
     Active Substance: CHOLECALCIFEROL
     Indication: Product used for unknown indication
     Dosage: CAPSULE, 5600 UNITS,   5600IE / BRAND NAME NOT SPECIFIED
     Route: 065
  4. CITALOPRAM [Concomitant]
     Active Substance: CITALOPRAM\CITALOPRAM HYDROBROMIDE
     Indication: Product used for unknown indication
     Dosage: 10 MG (MILLIGRAM), / BRAND NAME NOT SPECIFIED
     Route: 065
  5. CLOTRIMAZOLE [Concomitant]
     Active Substance: CLOTRIMAZOLE
     Indication: Product used for unknown indication
     Dosage: BRAND NAME NOT SPECIFIED
     Route: 065
  6. LISINOPRIL [Concomitant]
     Active Substance: LISINOPRIL
     Indication: Product used for unknown indication
     Dosage: / BRAND NAME NOT SPECIFIED
     Route: 065
  7. POLYETHYLENE GLYCOLS [Concomitant]
     Active Substance: POLYETHYLENE GLYCOLS
     Indication: Product used for unknown indication
     Dosage: POEDER VOOR DRANK, MACROGOL/SALTS PDR V DRINK (MOVIC/MOLAX/GEN) / MOVICOLON POWDER FOR DRINK IN S...
     Route: 065

REACTIONS (3)
  - Consciousness fluctuating [Recovered/Resolved]
  - Fatigue [Recovered/Resolved]
  - Somnolence [Recovered/Resolved]
